FAERS Safety Report 8589031-8 (Version None)
Quarter: 2012Q3

REPORT INFORMATION
  Report Type: 
  Country: None (occurrence: None)
  Receive Date: 20120813
  Receipt Date: 20120731
  Transmission Date: 20120928
  Serious: Yes (Hospitalization)
  Sender: FDA-Public Use
  Company Number: JP-PFIZER INC-2012163386

PATIENT
  Age: 52 Year
  Sex: Female

DRUGS (8)
  1. CYCLOPHOSPHAMIDE [Concomitant]
     Dosage: 870 MG, UNK
     Route: 042
     Dates: start: 20060317, end: 20100927
  2. KYTRIL [Concomitant]
     Dosage: 3 MG, 1X/DAY
     Route: 042
     Dates: start: 20060317, end: 20100927
  3. EMEND [Concomitant]
     Dosage: 125 MG, UNK
     Route: 048
     Dates: start: 20100630, end: 20100927
  4. EMEND [Concomitant]
     Dosage: 80 MG, UNK
     Route: 048
     Dates: start: 20100701, end: 20100929
  5. ZOMETA [Concomitant]
     Dosage: 4 MG, CYCLIC, EVERY 4 WEEKS
     Dates: start: 20100630
  6. DECADRON PHOSPHATE [Concomitant]
     Dosage: 16 MG, 1X/DAY
     Route: 042
     Dates: start: 20060317, end: 20060510
  7. ADRIAMYCIN PFS [Suspect]
     Indication: BREAST CANCER METASTATIC
     Dosage: 87 MG, UNK
     Route: 042
     Dates: start: 20060317, end: 20100927
  8. DEXAMETHASONE SODIUM PHOSPHATE [Concomitant]
     Dosage: 825 MG, UNK
     Route: 042
     Dates: start: 20100630, end: 20100929

REACTIONS (1)
  - CARDIAC FAILURE [None]
